FAERS Safety Report 17802776 (Version 1)
Quarter: 2020Q2

REPORT INFORMATION
  Report Type: Report from Study
  Country: GB (occurrence: GB)
  Receive Date: 20200519
  Receipt Date: 20200519
  Transmission Date: 20200714
  Serious: Yes (Life-Threatening)
  Sender: FDA-Public Use
  Company Number: GB-TEVA-2020-GB-1236095

PATIENT
  Age: 65 Year
  Sex: Male
  Weight: 98 kg

DRUGS (4)
  1. FLUDARABINE [Suspect]
     Active Substance: FLUDARABINE PHOSPHATE
     Indication: METASTATIC MALIGNANT MELANOMA
     Route: 065
  2. PROLEUKIN [Suspect]
     Active Substance: ALDESLEUKIN
     Dosage: UNK, Q12H
     Route: 042
     Dates: start: 20191127
  3. CYCLOPHOSPHAMIDE. [Suspect]
     Active Substance: CYCLOPHOSPHAMIDE
     Indication: METASTATIC MALIGNANT MELANOMA
     Route: 065
  4. PROLEUKIN [Suspect]
     Active Substance: ALDESLEUKIN
     Indication: METASTATIC MALIGNANT MELANOMA
     Dosage: UNK, Q12H, THERAPY END DATE : ASKED BUT UNKNOWN
     Route: 042
     Dates: start: 20191129

REACTIONS (2)
  - Pulmonary oedema [Recovered/Resolved]
  - Hypoxia [Recovered/Resolved]

NARRATIVE: CASE EVENT DATE: 20191129
